FAERS Safety Report 11644421 (Version 1)
Quarter: 2015Q4

REPORT INFORMATION
  Report Type: Spontaneous
  Country: US (occurrence: None)
  Receive Date: 20151019
  Receipt Date: 20151019
  Transmission Date: 20160304
  Serious: Yes (Life-Threatening, Disabling)
  Sender: FDA-Public Use
  Company Number: None

PATIENT
  Age: 51 Year
  Sex: Female
  Weight: 62.14 kg

DRUGS (2)
  1. LEVAQUIN [Suspect]
     Active Substance: LEVOFLOXACIN
     Indication: DIVERTICULITIS
     Dosage: 1 PILL
     Route: 048
     Dates: start: 20150423, end: 20150506
  2. COREG CR [Concomitant]
     Active Substance: CARVEDILOL PHOSPHATE

REACTIONS (17)
  - Vitreous floaters [None]
  - Decreased appetite [None]
  - Migraine [None]
  - Fatigue [None]
  - Tremor [None]
  - Insomnia [None]
  - Neuropathy peripheral [None]
  - Neuralgia [None]
  - Gallbladder non-functioning [None]
  - Abnormal loss of weight [None]
  - Anxiety [None]
  - Gait disturbance [None]
  - Mental disorder [None]
  - Tinnitus [None]
  - Glossodynia [None]
  - Fungal infection [None]
  - Photopsia [None]

NARRATIVE: CASE EVENT DATE: 20150423
